FAERS Safety Report 4472670-3 (Version None)
Quarter: 2004Q4

REPORT INFORMATION
  Report Type: 
  Country: None (occurrence: None)
  Receive Date: 20041008
  Receipt Date: 20040917
  Transmission Date: 20050328
  Serious: Yes (Hospitalization)
  Sender: FDA-Public Use
  Company Number: JP_040904556

PATIENT
  Age: 1 Year
  Sex: Male
  Weight: 10 kg

DRUGS (3)
  1. VINCRISTINE SULFATE [Suspect]
     Indication: RHABDOMYOSARCOMA
     Dosage: 1.5 MG/M2 OTHER
     Dates: start: 19890929
  2. ACTINOMYCIN D [Concomitant]
  3. CYCLOPHOSPHAMIDE [Concomitant]

REACTIONS (10)
  - ANAEMIA [None]
  - DEPRESSED LEVEL OF CONSCIOUSNESS [None]
  - DISSEMINATED INTRAVASCULAR COAGULATION [None]
  - DRUG HYPERSENSITIVITY [None]
  - HAEMORRHAGIC DIATHESIS [None]
  - HEPATOSPLENOMEGALY [None]
  - HYPERAMMONAEMIA [None]
  - PLEURAL EFFUSION [None]
  - THERAPEUTIC RESPONSE DECREASED [None]
  - VENOOCCLUSIVE LIVER DISEASE [None]
